FAERS Safety Report 23112313 (Version 1)
Quarter: 2023Q4

REPORT INFORMATION
  Report Type: Spontaneous
  Country: PT (occurrence: PT)
  Receive Date: 20231027
  Receipt Date: 20231027
  Transmission Date: 20240109
  Serious: Yes (Hospitalization, Other)
  Sender: FDA-Public Use
  Company Number: PT-AZEVEDOSP-2023-00689

PATIENT
  Age: 85 Year
  Sex: Female

DRUGS (3)
  1. IRBESARTAN [Suspect]
     Active Substance: IRBESARTAN
     Indication: Product used for unknown indication
     Dosage: 300 MILLIGRAM
     Route: 048
  2. APIXABAN [Suspect]
     Active Substance: APIXABAN
     Indication: Product used for unknown indication
     Dosage: 2.5 MILLIGRAM (80 TABLETS)
     Route: 048
  3. DIGOXIN [Suspect]
     Active Substance: DIGOXIN
     Indication: Product used for unknown indication
     Dosage: 125 MICROGRAM (20 TABLETS)
     Route: 048

REACTIONS (4)
  - Cardioactive drug level increased [Unknown]
  - Hypertension [Unknown]
  - Bradycardia [Recovered/Resolved]
  - Intentional overdose [Recovered/Resolved]
